APPROVED DRUG PRODUCT: HIPREX
Active Ingredient: METHENAMINE HIPPURATE
Strength: 1GM
Dosage Form/Route: TABLET;ORAL
Application: N017681 | Product #001 | TE Code: AB
Applicant: ESJAY PHARMA LLC
Approved: Approved Prior to Jan 1, 1982 | RLD: Yes | RS: No | Type: RX